FAERS Safety Report 7934507-7 (Version None)
Quarter: 2011Q4

REPORT INFORMATION
  Report Type: 
  Country: None (occurrence: None)
  Receive Date: 20111122
  Receipt Date: 20111117
  Transmission Date: 20120403
  Serious: Yes (Other)
  Sender: FDA-Public Use
  Company Number: US-GILEAD-2011-0046988

PATIENT
  Age: 60 Year
  Sex: Male

DRUGS (1)
  1. VIREAD [Suspect]
     Indication: HEPATITIS B
     Dosage: UNK
     Dates: end: 20110101

REACTIONS (3)
  - CHEST PAIN [None]
  - RENAL FAILURE [None]
  - ELECTROLYTE IMBALANCE [None]
